FAERS Safety Report 12572438 (Version 1)
Quarter: 2016Q3

REPORT INFORMATION
  Report Type: Spontaneous
  Country: TH (occurrence: TH)
  Receive Date: 20160719
  Receipt Date: 20160719
  Transmission Date: 20161109
  Serious: Yes (Life-Threatening, Other)
  Sender: FDA-Public Use
  Company Number: TH-ASTRAZENECA-2016SE77707

PATIENT
  Age: 64 Year
  Sex: Male

DRUGS (1)
  1. DAXAS [Suspect]
     Active Substance: ROFLUMILAST
     Indication: CHRONIC OBSTRUCTIVE PULMONARY DISEASE
     Route: 048
     Dates: start: 20160611, end: 20160614

REACTIONS (2)
  - Suicide attempt [Recovered/Resolved]
  - Depression [Recovered/Resolved]
